FAERS Safety Report 4286057-X (Version None)
Quarter: 2004Q1

REPORT INFORMATION
  Report Type: 
  Country: None (occurrence: None)
  Receive Date: 20040203
  Receipt Date: 20040123
  Transmission Date: 20041129
  Serious: Yes (Other)
  Sender: FDA-Public Use
  Company Number: 2004005502

PATIENT
  Sex: Male

DRUGS (3)
  1. NORVASC [Suspect]
     Indication: HYPERTENSION
     Dosage: 5 MG DAILY
  2. SODIUM CHLORIDE [Concomitant]
  3. OXYMETAZOLINE HYDROCHLORIDE [Concomitant]

REACTIONS (1)
  - EPISTAXIS [None]
